FAERS Safety Report 5097211-1 (Version None)
Quarter: 2006Q3

REPORT INFORMATION
  Report Type: 
  Country: None (occurrence: None)
  Receive Date: 20060901
  Receipt Date: 20060823
  Transmission Date: 20061208
  Serious: Yes (Other)
  Sender: FDA-Public Use
  Company Number: USA-2006-0024986

PATIENT
  Age: 42 Year
  Sex: Male

DRUGS (1)
  1. OXYCODONE HCL [Suspect]
     Indication: DRUG USE FOR UNKNOWN INDICATION
     Dosage: 40 MG, Q8H
     Dates: start: 20060801

REACTIONS (4)
  - DIZZINESS [None]
  - MYOCARDIAL INFARCTION [None]
  - NERVOUSNESS [None]
  - TACHYCARDIA [None]
